FAERS Safety Report 10048308 (Version 4)
Quarter: 2019Q1

REPORT INFORMATION
  Report Type: Spontaneous
  Country: US (occurrence: US)
  Receive Date: 20140331
  Receipt Date: 20190104
  Transmission Date: 20190417
  Serious: Yes (Hospitalization, Disabling, Other)
  Sender: FDA-Public Use
  Company Number: US-009507513-1205USA02811

PATIENT
  Sex: Female
  Weight: 65.76 kg

DRUGS (7)
  1. FOSAMAX [Suspect]
     Active Substance: ALENDRONATE SODIUM
     Indication: OSTEOPOROSIS
     Dosage: 10 MG, UNK
     Route: 048
     Dates: start: 199809, end: 200312
  2. VITAMINS (UNSPECIFIED) [Concomitant]
     Active Substance: VITAMINS
     Dosage: 2 TABS A DAY
     Route: 048
     Dates: start: 1994
  3. CALCIUM (UNSPECIFIED) [Concomitant]
     Active Substance: CALCIUM
     Dosage: 2 TABS A DAY
     Route: 048
     Dates: start: 1994
  4. FOSAMAX [Suspect]
     Active Substance: ALENDRONATE SODIUM
     Indication: OSTEOPOROSIS
     Dosage: 70 MILLIGRAM, QW
     Dates: start: 200401, end: 200802
  5. ALENDRONATE SODIUM. [Suspect]
     Active Substance: ALENDRONATE SODIUM
     Indication: PROPHYLAXIS
     Dosage: 70 MILLIGRAM, QW
     Route: 048
     Dates: start: 20080325, end: 200811
  6. OMEGA-3 MARINE TRIGLYCERIDES [Concomitant]
     Active Substance: FISH OIL
     Dosage: 2 TABS A DAY
     Route: 048
     Dates: start: 1994
  7. VITAMIN D [Concomitant]
     Active Substance: CHOLECALCIFEROL
     Dosage: 2 TABS A DAY
     Route: 048
     Dates: start: 1994

REACTIONS (16)
  - Spinal osteoarthritis [Not Recovered/Not Resolved]
  - Mammoplasty [Unknown]
  - Fibula fracture [Unknown]
  - Femur fracture [Unknown]
  - Tibia fracture [Unknown]
  - Caesarean section [Unknown]
  - Hyperlipidaemia [Not Recovered/Not Resolved]
  - Osteoporosis [Unknown]
  - Multiple fractures [Unknown]
  - Cataract [Unknown]
  - Cough [Recovered/Resolved]
  - Neck injury [Unknown]
  - Nutritional condition abnormal [Unknown]
  - Hypersensitivity [Unknown]
  - Low turnover osteopathy [Unknown]
  - Insomnia [Unknown]

NARRATIVE: CASE EVENT DATE: 199909
